FAERS Safety Report 7897889-0 (Version None)
Quarter: 2011Q4

REPORT INFORMATION
  Report Type: 
  Country: None (occurrence: None)
  Receive Date: 20111107
  Receipt Date: 20111031
  Transmission Date: 20120403
  Serious: Yes (Other)
  Sender: FDA-Public Use
  Company Number: US-AMGEN-USASP2011056511

PATIENT
  Age: 58 Year
  Sex: Female

DRUGS (2)
  1. ENBREL [Suspect]
     Indication: RHEUMATOID ARTHRITIS
     Dosage: 50 MG, QWK
     Dates: start: 20110504
  2. ANTIBIOTICS [Suspect]

REACTIONS (6)
  - OPEN WOUND [None]
  - LOCALISED INFECTION [None]
  - INFECTION [None]
  - EAR PAIN [None]
  - IMPAIRED HEALING [None]
  - FIBROMYALGIA [None]
